FAERS Safety Report 16246864 (Version 1)
Quarter: 2019Q2

REPORT INFORMATION
  Report Type: Report from Study
  Country: None (occurrence: BR)
  Receive Date: 20190427
  Receipt Date: 20190427
  Transmission Date: 20190711
  Serious: Yes (Hospitalization)
  Sender: FDA-Public Use
  Company Number: BR-ABBVIE-19K-020-2760240-00

PATIENT
  Age: 39 Year
  Sex: Male
  Weight: 115 kg

DRUGS (2)
  1. HUMIRA [Suspect]
     Active Substance: ADALIMUMAB
     Indication: COLITIS ULCERATIVE
  2. HUMIRA [Suspect]
     Active Substance: ADALIMUMAB
     Indication: PSORIATIC ARTHROPATHY
     Route: 058
     Dates: end: 201902

REACTIONS (3)
  - Liver disorder [Recovered/Resolved]
  - Immunodeficiency [Unknown]
  - Malaise [Unknown]

NARRATIVE: CASE EVENT DATE: 201903
